FAERS Safety Report 6333165 (Version 1)
Quarter: 2020Q3

REPORT INFORMATION
  Report Type: Spontaneous
  Country: DE (occurrence: DE)
  Receive Date: 20070614
  Receipt Date: 20070614
  Transmission Date: 20201104
  Serious: Yes (Other)
  Sender: FDA-Public Use
  Company Number: DE-ROCHE-497880

PATIENT
  Age: 64 Year
  Sex: Female

DRUGS (3)
  1. IBANDRONIC ACID. [Suspect]
     Active Substance: IBANDRONIC ACID
     Route: 048
     Dates: start: 20070423, end: 20070506
  2. FEMARA [Concomitant]
     Active Substance: LETROZOLE
     Route: 048
     Dates: start: 200504
  3. CLODRONIC ACID [Concomitant]
     Active Substance: CLODRONIC ACID

REACTIONS (1)
  - Telangiectasia [Recovering/Resolving]

NARRATIVE: CASE EVENT DATE: 20070507
